FAERS Safety Report 8102342-5 (Version None)
Quarter: 2012Q1

REPORT INFORMATION
  Report Type: 
  Country: None (occurrence: None)
  Receive Date: 20120201
  Receipt Date: 20120127
  Transmission Date: 20120608
  Serious: No
  Sender: FDA-Public Use
  Company Number: US-PFIZER INC-2011308844

PATIENT
  Sex: Male

DRUGS (2)
  1. EFFEXOR [Suspect]
  2. PRISTIQ [Suspect]

REACTIONS (1)
  - DIZZINESS [None]
